FAERS Safety Report 16383606 (Version 1)
Quarter: 2019Q3

REPORT INFORMATION
  Report Type: Spontaneous
  Country: US (occurrence: US)
  Receive Date: 20190531
  Receipt Date: 20190531
  Transmission Date: 20191004
  Serious: Yes (Other)
  Sender: FDA-Public Use
  Company Number: None

PATIENT
  Age: 65 Year
  Sex: Female
  Weight: 55.8 kg

DRUGS (6)
  1. KRILL OIL [Concomitant]
     Active Substance: DIETARY SUPPLEMENT\KRILL OIL
  2. CITRICAL PETITES [Concomitant]
  3. WOMEN^S MULTIVITAMIN [Concomitant]
  4. RISEDRONATE SODIUM DELAYED-RELEASE TABLETS 35 MG [Suspect]
     Active Substance: RISEDRONATE SODIUM
     Indication: OSTEOPENIA
     Dosage: ?          QUANTITY:1 TABLET(S);OTHER FREQUENCY:ONCE-A WEEK;?
     Route: 048
     Dates: start: 20190514, end: 20190528
  5. LOW-DOSE ASPIRIN [Concomitant]
     Active Substance: ASPIRIN
  6. MAGNESIUM [Concomitant]
     Active Substance: MAGNESIUM

REACTIONS (5)
  - Abdominal pain upper [None]
  - Hypophagia [None]
  - Constipation [None]
  - Insomnia [None]
  - Dyspepsia [None]

NARRATIVE: CASE EVENT DATE: 20190528
